FAERS Safety Report 15733961 (Version 3)
Quarter: 2019Q1

REPORT INFORMATION
  Report Type: Spontaneous
  Country: US (occurrence: US)
  Receive Date: 20181218
  Receipt Date: 20190219
  Transmission Date: 20190417
  Serious: No
  Sender: FDA-Public Use
  Company Number: US-PFIZER INC-2018519122

PATIENT
  Sex: Female

DRUGS (4)
  1. CYTOXAN [Concomitant]
     Active Substance: CYCLOPHOSPHAMIDE
     Dosage: UNK
  2. NEOSAR [Concomitant]
     Active Substance: CYCLOPHOSPHAMIDE
     Dosage: UNK
     Dates: start: 201307, end: 201309
  3. TAXOTERE [Suspect]
     Active Substance: DOCETAXEL
     Indication: BREAST CANCER
     Dosage: 20MG CYLIC (EVERY 3 WEEKS)
     Dates: start: 201308, end: 201310
  4. DOCETAXEL. [Suspect]
     Active Substance: DOCETAXEL
     Indication: BREAST CANCER
     Dosage: 20MG CYLIC (EVERY 3 WEEKS)
     Dates: start: 201308, end: 201310

REACTIONS (1)
  - Alopecia [Not Recovered/Not Resolved]
